FAERS Safety Report 5385107-7 (Version None)
Quarter: 2007Q3

REPORT INFORMATION
  Report Type: 
  Country: None (occurrence: None)
  Receive Date: 20070706
  Receipt Date: 20070706
  Transmission Date: 20080115
  Serious: Yes (Hospitalization)
  Sender: FDA-Public Use
  Company Number: None

PATIENT
  Sex: Male
  Weight: 86.1834 kg

DRUGS (1)
  1. REVLIMID [Suspect]
     Indication: CHRONIC LYMPHOCYTIC LEUKAEMIA
     Dosage: 25 MG DAILY DAYS 1-21 PO
     Route: 048
     Dates: start: 20070611, end: 20070701

REACTIONS (5)
  - BLOOD CULTURE POSITIVE [None]
  - CONFUSIONAL STATE [None]
  - HYPOTENSION [None]
  - PYREXIA [None]
  - SEPSIS [None]
